FAERS Safety Report 15819105 (Version 1)
Quarter: 2019Q1

REPORT INFORMATION
  Report Type: Spontaneous
  Country: US (occurrence: US)
  Receive Date: 20190114
  Receipt Date: 20190114
  Transmission Date: 20190417
  Serious: No
  Sender: FDA-Public Use
  Company Number: US-ROCHE-2095126

PATIENT
  Age: 10 Year
  Sex: Male

DRUGS (3)
  1. NUTROPIN [Suspect]
     Active Substance: SOMATROPIN
     Dosage: 5MG PER 2 ML ;ONGOING: YES
     Route: 058
     Dates: start: 20180317
  2. NUTROPIN [Suspect]
     Active Substance: SOMATROPIN
     Dosage: 10MG PER 2 ML ;ONGOING: NO
     Route: 058
     Dates: start: 20180314, end: 20180317
  3. NUTROPIN [Suspect]
     Active Substance: SOMATROPIN
     Indication: PRODUCT USED FOR UNKNOWN INDICATION
     Dosage: 5 MG PER 2ML ;ONGOING: NO
     Route: 058
     Dates: start: 20170207, end: 20180314

REACTIONS (2)
  - Urticaria [Unknown]
  - Pruritus [Unknown]

NARRATIVE: CASE EVENT DATE: 20180316
